FAERS Safety Report 8561499-2 (Version None)
Quarter: 2012Q3

REPORT INFORMATION
  Report Type: 
  Country: None (occurrence: None)
  Receive Date: 20120802
  Receipt Date: 20120726
  Transmission Date: 20120928
  Serious: Yes (Other)
  Sender: FDA-Public Use
  Company Number: US-JNJFOC-20120714516

PATIENT
  Sex: Male
  Weight: 76.66 kg

DRUGS (7)
  1. XARELTO [Suspect]
     Indication: ATRIAL FIBRILLATION
     Route: 048
     Dates: start: 20120501
  2. ASPIRIN [Concomitant]
     Indication: CARDIAC DISORDER
     Route: 048
     Dates: start: 20070101
  3. XARELTO [Suspect]
     Indication: CEREBROVASCULAR ACCIDENT PROPHYLAXIS
     Route: 048
     Dates: start: 20120501
  4. BENICAR [Concomitant]
     Indication: BLOOD PRESSURE
     Route: 048
  5. UNSPECIFIED CHOLESTEROL MEDICATION [Concomitant]
     Indication: BLOOD CHOLESTEROL INCREASED
     Route: 048
     Dates: start: 20070101
  6. XARELTO [Suspect]
     Route: 048
     Dates: start: 20120101, end: 20120501
  7. XARELTO [Suspect]
     Route: 048
     Dates: start: 20120101, end: 20120501

REACTIONS (5)
  - HYPERTENSION [None]
  - HAEMORRHAGIC DIATHESIS [None]
  - FALL [None]
  - IMPAIRED HEALING [None]
  - SKIN HAEMORRHAGE [None]
